FAERS Safety Report 4378768-2 (Version None)
Quarter: 2004Q2

REPORT INFORMATION
  Report Type: 
  Country: None (occurrence: None)
  Receive Date: 20040609
  Receipt Date: 20040526
  Transmission Date: 20050107
  Serious: Yes (Death)
  Sender: FDA-Public Use
  Company Number: USA040568574

PATIENT
  Age: 86 Year
  Sex: Female

DRUGS (1)
  1. ZYPREXA [Suspect]
     Indication: SENILE DEMENTIA
     Dosage: 15 MG DAY
     Dates: start: 20020515

REACTIONS (1)
  - DEATH [None]
